FAERS Safety Report 20642169 (Version 2)
Quarter: 2022Q2

REPORT INFORMATION
  Report Type: Spontaneous
  Country: PL (occurrence: PL)
  Receive Date: 20220328
  Receipt Date: 20220405
  Transmission Date: 20220721
  Serious: Yes (Hospitalization, Other)
  Sender: FDA-Public Use
  Company Number: PL-GILEAD-2022-0574587

PATIENT
  Age: 29 Year
  Sex: Male

DRUGS (10)
  1. TRUVADA [Suspect]
     Active Substance: EMTRICITABINE\TENOFOVIR DISOPROXIL FUMARATE
     Indication: HIV infection
     Dosage: UNK
     Route: 065
     Dates: start: 20081219, end: 2021
  2. VIRAMUNE [Concomitant]
     Active Substance: NEVIRAPINE
  3. IRON [Concomitant]
     Active Substance: IRON
  4. CARBAMAZEPINE [Concomitant]
     Active Substance: CARBAMAZEPINE
  5. VALPROIC ACID [Concomitant]
     Active Substance: VALPROIC ACID
  6. SERTRALINE [Concomitant]
     Active Substance: SERTRALINE HYDROCHLORIDE
  7. ATAZANAVIR\RITONAVIR [Concomitant]
     Active Substance: ATAZANAVIR\RITONAVIR
  8. VITAMINS NOS [Concomitant]
     Active Substance: VITAMINS
  9. RALTEGRAVIR [Concomitant]
     Active Substance: RALTEGRAVIR
  10. COMIRNATY [Concomitant]
     Active Substance: TOZINAMERAN

REACTIONS (27)
  - Herpes simplex [Recovering/Resolving]
  - Helicobacter infection [Recovering/Resolving]
  - Gastritis erosive [Unknown]
  - HIV meningoencephalitis [Unknown]
  - Dependence [Unknown]
  - CSF lymphocyte count increased [Unknown]
  - Oesophagitis [Unknown]
  - Gastrooesophageal reflux disease [Unknown]
  - Mood disorder due to a general medical condition [Unknown]
  - Personality disorder [Unknown]
  - Muscular weakness [Unknown]
  - Decreased appetite [Unknown]
  - Weight decreased [Unknown]
  - Memory impairment [Unknown]
  - Disturbance in attention [Unknown]
  - Aggression [Unknown]
  - Aggression [Unknown]
  - Ataxia [Unknown]
  - Hyperreflexia [Unknown]
  - Areflexia [Unknown]
  - Asthenia [Unknown]
  - Anaemia macrocytic [Unknown]
  - Blood HIV RNA increased [Unknown]
  - Depressed mood [Unknown]
  - Exercise tolerance decreased [Unknown]
  - Gamma-glutamyltransferase increased [Unknown]
  - Intentional dose omission [Recovered/Resolved]

NARRATIVE: CASE EVENT DATE: 20100101
